FAERS Safety Report 7123653-6 (Version None)
Quarter: 2010Q4

REPORT INFORMATION
  Report Type: 
  Country: None (occurrence: None)
  Receive Date: 20101125
  Receipt Date: 20101122
  Transmission Date: 20110411
  Serious: Yes (Death)
  Sender: FDA-Public Use
  Company Number: SA-PFIZER INC-2010155523

PATIENT
  Age: 29 Year
  Sex: Male

DRUGS (1)
  1. ZITHROMAX [Suspect]
     Indication: CHRONIC OBSTRUCTIVE PULMONARY DISEASE
     Dosage: 500 MG, UNK
     Route: 040
     Dates: start: 20101101, end: 20101101

REACTIONS (2)
  - ANGINA PECTORIS [None]
  - CHEST PAIN [None]
